FAERS Safety Report 9841615 (Version 1)
Quarter: 2013Q4

REPORT INFORMATION
  Report Type: Spontaneous
  Country: US (occurrence: None)
  Receive Date: 20131219
  Receipt Date: 20131219
  Transmission Date: 20140711
  Serious: Yes (Hospitalization, Other)
  Sender: FDA-Public Use
  Company Number: 163-20785-13061187

PATIENT
  Age: 78 Year
  Sex: Female

DRUGS (9)
  1. THALOMID (THALOMID) (200 MILLIGRAM, CAPSULES) [Suspect]
     Route: 048
     Dates: start: 20130507
  2. HYMULIN (NOVOLIN 20/80) (UNKNOWN) [Concomitant]
  3. CALCIUM (CALCIUM) [Concomitant]
  4. DEXAMETHASONE (DEXAMETHASONE) [Concomitant]
  5. ASA (ACETYLSALICYLIC ACID) [Concomitant]
  6. OXYCODONE (OXYCODONE) [Concomitant]
  7. MS CONTIN (MORPHINE SULFATE) [Concomitant]
  8. PERCOCET (OXYCOCET) [Concomitant]
  9. LYRICA (PREGABALIN) [Concomitant]

REACTIONS (2)
  - Haemoglobin decreased [None]
  - Local swelling [None]
